FAERS Safety Report 20580764 (Version 3)
Quarter: 2022Q3

REPORT INFORMATION
  Report Type: Report from Study
  Country: US (occurrence: US)
  Receive Date: 20220311
  Receipt Date: 20220704
  Transmission Date: 20221026
  Serious: No
  Sender: FDA-Public Use
  Company Number: US-NOVARTISTESTPH-NVSC2022US056751

PATIENT
  Sex: Female

DRUGS (1)
  1. COSENTYX [Suspect]
     Active Substance: SECUKINUMAB
     Indication: Psoriatic arthropathy
     Dosage: 300 MG, QW ONCE A WEEK FOR 5 WEEKS AND THEN Q 4 WEEKS
     Route: 058
     Dates: end: 202112

REACTIONS (2)
  - Arthralgia [Unknown]
  - Pain [Not Recovered/Not Resolved]
